FAERS Safety Report 4961919-6 (Version None)
Quarter: 2006Q2

REPORT INFORMATION
  Report Type: 
  Country: None (occurrence: None)
  Receive Date: 20060404
  Receipt Date: 20050817
  Transmission Date: 20061013
  Serious: Yes (Hospitalization, Disabling)
  Sender: FDA-Public Use
  Company Number: US-MERCK-0508USA03278

PATIENT
  Age: 69 Year
  Sex: Male
  Weight: 116 kg

DRUGS (1)
  1. VIOXX [Suspect]
     Indication: ARTHRITIS
     Route: 048

REACTIONS (15)
  - ABSCESS NECK [None]
  - ANGINA PECTORIS [None]
  - ARTHRALGIA [None]
  - CEREBROVASCULAR ACCIDENT [None]
  - COORDINATION ABNORMAL [None]
  - DIPLOPIA [None]
  - DYSPNOEA [None]
  - HEADACHE [None]
  - HEPATIC ENZYME INCREASED [None]
  - HYPERTENSION [None]
  - HYPERVENTILATION [None]
  - JOINT CONTRACTURE [None]
  - LIMB DISCOMFORT [None]
  - MENISCUS LESION [None]
  - TOOTH ABSCESS [None]
